FAERS Safety Report 10880675 (Version 1)
Quarter: 2015Q1

REPORT INFORMATION
  Report Type: Report from Study
  Country: US (occurrence: US)
  Receive Date: 20150303
  Receipt Date: 20150303
  Transmission Date: 20150721
  Serious: Yes (Death, Other)
  Sender: FDA-Public Use
  Company Number: US-GILEAD-2015-0139511

PATIENT
  Age: 72 Year
  Sex: Female

DRUGS (20)
  1. AMBRISENTAN [Suspect]
     Active Substance: AMBRISENTAN
     Indication: PULMONARY ARTERIAL HYPERTENSION
     Dosage: 5 MG, QD
     Route: 065
     Dates: start: 20141101, end: 20150221
  2. ADVAIR HFA [Concomitant]
     Active Substance: FLUTICASONE PROPIONATE\SALMETEROL XINAFOATE
  3. FISH OIL [Concomitant]
     Active Substance: FISH OIL
  4. FLECAINIDE [Concomitant]
     Active Substance: FLECAINIDE
  5. VITAMIN C [Concomitant]
     Active Substance: ASCORBIC ACID
  6. VITAMIN D [Concomitant]
     Active Substance: CHOLECALCIFEROL
  7. NEXIUM [Concomitant]
     Active Substance: ESOMEPRAZOLE MAGNESIUM
  8. TUDORZA PRESSAIR [Concomitant]
     Active Substance: ACLIDINIUM BROMIDE
  9. MULTIVITAMIN                       /07504101/ [Concomitant]
     Active Substance: VITAMINS
  10. CELEXA [Concomitant]
     Active Substance: CITALOPRAM HYDROBROMIDE
  11. BYSTOLIC [Concomitant]
     Active Substance: NEBIVOLOL HYDROCHLORIDE
  12. PROVENTIL                          /00139502/ [Concomitant]
  13. PRESERVISION AREDS [Concomitant]
  14. CRESTOR [Concomitant]
     Active Substance: ROSUVASTATIN CALCIUM
  15. ASPIRIN                            /00002701/ [Concomitant]
     Active Substance: ASPIRIN
  16. ROPINIROLE. [Concomitant]
     Active Substance: ROPINIROLE
  17. IRON [Concomitant]
     Active Substance: IRON
  18. CALCIUM [Concomitant]
     Active Substance: CALCIUM
  19. TORSEMIDE. [Concomitant]
     Active Substance: TORSEMIDE
  20. CYMBALTA [Concomitant]
     Active Substance: DULOXETINE HYDROCHLORIDE

REACTIONS (1)
  - Death [Fatal]

NARRATIVE: CASE EVENT DATE: 20150222
